FAERS Safety Report 10214573 (Version 2)
Quarter: 2014Q4

REPORT INFORMATION
  Report Type: Spontaneous
  Country: US (occurrence: US)
  Receive Date: 20140603
  Receipt Date: 20141224
  Transmission Date: 20150528
  Serious: Yes (Hospitalization, Other)
  Sender: FDA-Public Use
  Company Number: US-GILEAD-2014-0103966

PATIENT
  Age: 63 Year
  Sex: Male

DRUGS (27)
  1. RESTORIL                           /00393701/ [Concomitant]
  2. CELEBREX [Concomitant]
     Active Substance: CELECOXIB
  3. ASPIRIN. [Concomitant]
     Active Substance: ASPIRIN
  4. TRAZODONE [Concomitant]
     Active Substance: TRAZODONE HYDROCHLORIDE
  5. ATENOLOL. [Concomitant]
     Active Substance: ATENOLOL
  6. COLCHICINE. [Concomitant]
     Active Substance: COLCHICINE
  7. REMODULIN [Concomitant]
     Active Substance: TREPROSTINIL
  8. TRICOR                             /00090101/ [Concomitant]
  9. POTASSIUM CL [Concomitant]
     Active Substance: POTASSIUM CHLORIDE
  10. LETAIRIS [Suspect]
     Active Substance: AMBRISENTAN
     Indication: COR PULMONALE CHRONIC
     Dosage: 10 MG, QD
     Route: 065
     Dates: start: 20130612
  11. TORSEMIDE. [Concomitant]
     Active Substance: TORSEMIDE
  12. LETAIRIS [Suspect]
     Active Substance: AMBRISENTAN
     Indication: PULMONARY HYPERTENSION
  13. GABAPENTIN. [Concomitant]
     Active Substance: GABAPENTIN
  14. PLAVIX [Concomitant]
     Active Substance: CLOPIDOGREL BISULFATE
  15. LANOXIN [Concomitant]
     Active Substance: DIGOXIN
  16. LETAIRIS [Suspect]
     Active Substance: AMBRISENTAN
     Indication: SYSTEMIC SCLEROSIS
  17. LOSARTAN [Concomitant]
     Active Substance: LOSARTAN
  18. VIAGRA [Concomitant]
     Active Substance: SILDENAFIL CITRATE
  19. NEXIUM [Concomitant]
     Active Substance: ESOMEPRAZOLE MAGNESIUM
  20. ANDRODERM [Concomitant]
     Active Substance: TESTOSTERONE
  21. FLUTICASONE [Concomitant]
     Active Substance: FLUTICASONE\FLUTICASONE PROPIONATE
  22. PRANDIN                            /00882701/ [Concomitant]
  23. EFFEXOR [Concomitant]
     Active Substance: VENLAFAXINE HYDROCHLORIDE
  24. ALLOPURINOL. [Concomitant]
     Active Substance: ALLOPURINOL
  25. XIFAXAN [Concomitant]
     Active Substance: RIFAXIMIN
  26. CRESTOR [Concomitant]
     Active Substance: ROSUVASTATIN CALCIUM
  27. PREDNISONE. [Concomitant]
     Active Substance: PREDNISONE

REACTIONS (2)
  - Skin ulcer [Unknown]
  - Fluid overload [Recovering/Resolving]
